FAERS Safety Report 22154459 (Version 1)
Quarter: 2023Q1

REPORT INFORMATION
  Report Type: Spontaneous
  Country: CA (occurrence: CA)
  Receive Date: 20230330
  Receipt Date: 20230330
  Transmission Date: 20230418
  Serious: Yes (Other)
  Sender: FDA-Public Use
  Company Number: CA-002147023-NVSC2023CA069767

PATIENT
  Age: 77 Year
  Sex: Male

DRUGS (45)
  1. PRAMIPEXOLE [Suspect]
     Active Substance: PRAMIPEXOLE
     Indication: Resting tremor
     Dosage: UNK
     Route: 065
  2. PRAMIPEXOLE [Suspect]
     Active Substance: PRAMIPEXOLE
     Indication: Parkinsonian rest tremor
     Dosage: UNK
     Route: 065
  3. PRAMIPEXOLE [Suspect]
     Active Substance: PRAMIPEXOLE
     Indication: Parkinson^s disease
     Dosage: 10 MG, TID (3 EVERY 1 DAYS)
     Route: 065
  4. PRAMIPEXOLE [Suspect]
     Active Substance: PRAMIPEXOLE
     Indication: Head titubation
     Dosage: UNK
     Route: 065
  5. PROPRANOLOL HYDROCHLORIDE [Suspect]
     Active Substance: PROPRANOLOL HYDROCHLORIDE
     Indication: Resting tremor
     Dosage: UNK
     Route: 065
  6. PROPRANOLOL HYDROCHLORIDE [Suspect]
     Active Substance: PROPRANOLOL HYDROCHLORIDE
     Indication: Parkinsonian rest tremor
  7. PROPRANOLOL HYDROCHLORIDE [Suspect]
     Active Substance: PROPRANOLOL HYDROCHLORIDE
     Indication: Parkinson^s disease
  8. PROPRANOLOL HYDROCHLORIDE [Suspect]
     Active Substance: PROPRANOLOL HYDROCHLORIDE
     Indication: Head titubation
  9. AMANTADINE [Suspect]
     Active Substance: AMANTADINE
     Indication: Resting tremor
     Dosage: 100 MG, QD (1 EVERY 1 DAYS)
     Route: 065
  10. AMANTADINE [Suspect]
     Active Substance: AMANTADINE
     Indication: Parkinsonian rest tremor
     Dosage: 100 MG, BID (2 EVERY 1 DAYS)
     Route: 065
  11. AMANTADINE [Suspect]
     Active Substance: AMANTADINE
     Indication: Parkinson^s disease
     Dosage: 200 MG, QD (1 EVERY 1 DAYS)
     Route: 065
  12. AMANTADINE [Suspect]
     Active Substance: AMANTADINE
     Indication: Head titubation
     Dosage: 100 MG, BID (2 EVERY 1 DAYS)
     Route: 065
  13. BENSERAZIDE HYDROCHLORIDE [Suspect]
     Active Substance: BENSERAZIDE HYDROCHLORIDE
     Indication: Resting tremor
     Dosage: UNK, TID (3 EVERY 1 DAYS)
     Route: 065
  14. BENSERAZIDE HYDROCHLORIDE [Suspect]
     Active Substance: BENSERAZIDE HYDROCHLORIDE
     Indication: Parkinson^s disease
     Dosage: UNK, TID (3 EVERY 1 DAYS)
     Route: 065
  15. CARBIDOPA\LEVODOPA [Suspect]
     Active Substance: CARBIDOPA\LEVODOPA
     Indication: Tremor
     Dosage: UNK
     Route: 065
  16. CARBIDOPA\LEVODOPA [Suspect]
     Active Substance: CARBIDOPA\LEVODOPA
     Indication: Dysphonia
     Dosage: UNK
     Route: 065
  17. CLONAZEPAM [Suspect]
     Active Substance: CLONAZEPAM
     Indication: Parkinsonian rest tremor
     Dosage: UNK
     Route: 065
  18. CLONAZEPAM [Suspect]
     Active Substance: CLONAZEPAM
     Indication: Parkinson^s disease
     Dosage: UNK
     Route: 065
  19. CLONAZEPAM [Suspect]
     Active Substance: CLONAZEPAM
     Indication: Head titubation
     Dosage: UNK
     Route: 065
  20. GABAPENTIN [Suspect]
     Active Substance: GABAPENTIN
     Indication: Resting tremor
     Dosage: UNK
     Route: 065
  21. GABAPENTIN [Suspect]
     Active Substance: GABAPENTIN
     Indication: Parkinsonian rest tremor
     Dosage: UNK
     Route: 065
  22. GABAPENTIN [Suspect]
     Active Substance: GABAPENTIN
     Indication: Parkinson^s disease
     Dosage: UNK
     Route: 065
  23. GABAPENTIN [Suspect]
     Active Substance: GABAPENTIN
     Indication: Head titubation
     Dosage: UNK
     Route: 065
  24. PRIMIDONE [Suspect]
     Active Substance: PRIMIDONE
     Indication: Resting tremor
     Dosage: UNK
     Route: 065
  25. PRIMIDONE [Suspect]
     Active Substance: PRIMIDONE
     Indication: Parkinsonian rest tremor
     Dosage: UNK
     Route: 065
  26. PRIMIDONE [Suspect]
     Active Substance: PRIMIDONE
     Indication: Parkinson^s disease
     Dosage: UNK
     Route: 065
  27. PRIMIDONE [Suspect]
     Active Substance: PRIMIDONE
     Indication: Head titubation
     Dosage: UNK
     Route: 065
  28. PROPRANOLOL HYDROCHLORIDE [Suspect]
     Active Substance: PROPRANOLOL HYDROCHLORIDE
     Indication: Resting tremor
     Dosage: UNK
     Route: 065
  29. PROPRANOLOL HYDROCHLORIDE [Suspect]
     Active Substance: PROPRANOLOL HYDROCHLORIDE
     Indication: Parkinsonian rest tremor
     Dosage: UNK
     Route: 065
  30. PROPRANOLOL HYDROCHLORIDE [Suspect]
     Active Substance: PROPRANOLOL HYDROCHLORIDE
     Indication: Parkinson^s disease
     Dosage: UNK
     Route: 065
  31. PROPRANOLOL HYDROCHLORIDE [Suspect]
     Active Substance: PROPRANOLOL HYDROCHLORIDE
     Indication: Head titubation
  32. ROPINIROLE HYDROCHLORIDE [Suspect]
     Active Substance: ROPINIROLE HYDROCHLORIDE
     Indication: Resting tremor
     Dosage: UNK
     Route: 065
  33. ROPINIROLE HYDROCHLORIDE [Suspect]
     Active Substance: ROPINIROLE HYDROCHLORIDE
     Indication: Parkinsonian rest tremor
     Dosage: UNK
     Route: 065
  34. ROPINIROLE HYDROCHLORIDE [Suspect]
     Active Substance: ROPINIROLE HYDROCHLORIDE
     Indication: Parkinson^s disease
     Dosage: UNK
     Route: 065
  35. ROPINIROLE HYDROCHLORIDE [Suspect]
     Active Substance: ROPINIROLE HYDROCHLORIDE
     Indication: Head titubation
     Dosage: UNK
     Route: 065
  36. SELEGILINE [Suspect]
     Active Substance: SELEGILINE
     Indication: Tremor
     Dosage: UNK
     Route: 065
  37. SELEGILINE [Suspect]
     Active Substance: SELEGILINE
     Indication: Dysphonia
     Dosage: UNK
     Route: 065
  38. ETHOPROPAZINE [Concomitant]
     Active Substance: ETHOPROPAZINE
     Indication: Resting tremor
     Dosage: UNK
     Route: 065
  39. ETHOPROPAZINE [Concomitant]
     Active Substance: ETHOPROPAZINE
     Indication: Parkinsonian rest tremor
  40. ETHOPROPAZINE [Concomitant]
     Active Substance: ETHOPROPAZINE
     Indication: Parkinson^s disease
  41. ETHOPROPAZINE [Concomitant]
     Active Substance: ETHOPROPAZINE
     Indication: Head titubation
  42. TRIHEXYPHENIDYL [Concomitant]
     Active Substance: TRIHEXYPHENIDYL
     Indication: Resting tremor
     Dosage: 2 MG, TID (3 EVERY 1 DAYS)
     Route: 065
  43. TRIHEXYPHENIDYL [Concomitant]
     Active Substance: TRIHEXYPHENIDYL
     Indication: Parkinsonian rest tremor
  44. TRIHEXYPHENIDYL [Concomitant]
     Active Substance: TRIHEXYPHENIDYL
     Indication: Parkinson^s disease
  45. TRIHEXYPHENIDYL [Concomitant]
     Active Substance: TRIHEXYPHENIDYL
     Indication: Head titubation

REACTIONS (6)
  - Dizziness [Unknown]
  - Hallucination [Unknown]
  - Oedema peripheral [Unknown]
  - Somnolence [Unknown]
  - Off label use [Unknown]
  - Drug ineffective [Unknown]
